FAERS Safety Report 24064584 (Version 2)
Quarter: 2024Q3

REPORT INFORMATION
  Report Type: Spontaneous
  Country: AE (occurrence: AE)
  Receive Date: 20240709
  Receipt Date: 20240716
  Transmission Date: 20241016
  Serious: Yes (Hospitalization, Other)
  Sender: ACCORD
  Company Number: AE-Accord-433753

PATIENT
  Age: 42 Year
  Sex: Female

DRUGS (3)
  1. CLOZAPINE [Suspect]
     Active Substance: CLOZAPINE
     Indication: Schizoaffective disorder
     Dosage: TAPERED UP TO 500 MG DAILY TO TACKLE HER PSYCHOTIC SYMPTOMS
     Dates: start: 202210
  2. CLOZAPINE [Suspect]
     Active Substance: CLOZAPINE
     Indication: Schizoaffective disorder
     Dosage: CLOZAPINE WAS GRADUALLY REDUCED TO 300 MG DAILY IN DIVIDED DOSES
     Dates: start: 2022
  3. CLOZAPINE [Suspect]
     Active Substance: CLOZAPINE
     Indication: Schizoaffective disorder
     Dosage: CLOZAPINE WAS GRADUALLY REDUCED TO 300 MG DAILY IN DIVIDED DOSES
     Dates: start: 2022

REACTIONS (5)
  - Electric shock sensation [Recovered/Resolved]
  - Fall [Recovered/Resolved]
  - Lower limb fracture [Unknown]
  - Balance disorder [Unknown]
  - Fibula fracture [Unknown]

NARRATIVE: CASE EVENT DATE: 20220101
